FAERS Safety Report 19870051 (Version 1)
Quarter: 2021Q3

REPORT INFORMATION
  Report Type: Report from Study
  Country: None (occurrence: US)
  Receive Date: 20210922
  Receipt Date: 20210922
  Transmission Date: 20211014
  Serious: Yes (Hospitalization)
  Sender: FDA-Public Use
  Company Number: US-ABBVIE-21P-163-4061963-00

PATIENT

DRUGS (5)
  1. PREDNISONE. [Concomitant]
     Active Substance: PREDNISONE
     Indication: B-CELL LYMPHOMA
     Dosage: ONCE IN 3 WEEKS, ON DAY 1 ? 7 (AS PER PROTOCOL)
     Route: 048
     Dates: start: 20210423, end: 20210812
  2. LENALIDOMIDE [Concomitant]
     Active Substance: LENALIDOMIDE
     Indication: B-CELL LYMPHOMA
     Dosage: ONCE IN 3 WEEKS, ON DAY 1?14 (AS PER PROTOCOL)
     Route: 048
     Dates: start: 20210423, end: 20210818
  3. VENETOCLAX. [Suspect]
     Active Substance: VENETOCLAX
     Indication: B-CELL LYMPHOMA
     Dosage: ONCE IN 3 WEEKS, ON DAY 2?14 (AS PER PROTOCOL)
     Route: 048
     Dates: start: 20210518, end: 20210818
  4. IBRUTINIB [Suspect]
     Active Substance: IBRUTINIB
     Indication: B-CELL LYMPHOMA
     Dosage: ONCE IN 3 WEEKS, ON DAY 1 ? 14 (AS PER PROTOCOL)
     Route: 048
     Dates: start: 20210423, end: 20210818
  5. OBINUTUZUMAB. [Concomitant]
     Active Substance: OBINUTUZUMAB
     Indication: B-CELL LYMPHOMA
     Dosage: ONCE IN 3 WEEKS, ON DAY 1 ? 2 (AS PER PROTOCOL)
     Route: 042
     Dates: start: 20210423, end: 20210807

REACTIONS (3)
  - Urinary tract infection [Unknown]
  - Syncope [Unknown]
  - Bacteraemia [Unknown]

NARRATIVE: CASE EVENT DATE: 20210823
